FAERS Safety Report 6441862-6 (Version None)
Quarter: 2009Q4

REPORT INFORMATION
  Report Type: 
  Country: None (occurrence: None)
  Receive Date: 20091112
  Receipt Date: 20091109
  Transmission Date: 20100525
  Serious: Yes (Other)
  Sender: FDA-Public Use
  Company Number: A0816005A

PATIENT
  Age: 65 Year
  Sex: Male

DRUGS (1)
  1. UREA PEROXIDE [Suspect]
     Dosage: AURAL

REACTIONS (4)
  - APPLICATION SITE BLEEDING [None]
  - APPLICATION SITE DISCHARGE [None]
  - APPLICATION SITE DISCOMFORT [None]
  - APPLICATION SITE INFECTION [None]
